FAERS Safety Report 18013167 (Version 3)
Quarter: 2021Q1

REPORT INFORMATION
  Report Type: Spontaneous
  Country: US (occurrence: US)
  Receive Date: 20200713
  Receipt Date: 20210128
  Transmission Date: 20210419
  Serious: No
  Sender: FDA-Public Use
  Company Number: US-PFIZER INC-2020266340

PATIENT
  Age: 70 Year
  Sex: Female
  Weight: 58.51 kg

DRUGS (4)
  1. LYRICA [Suspect]
     Active Substance: PREGABALIN
     Indication: SPINAL OPERATION
     Dosage: 100 MG, 3X/DAY
     Dates: start: 2018
  2. LYRICA [Suspect]
     Active Substance: PREGABALIN
     Indication: SPINAL OSTEOARTHRITIS
     Dosage: 150 MG, AS NEEDED
     Route: 048
  3. LYRICA [Suspect]
     Active Substance: PREGABALIN
     Indication: PAIN
     Dosage: UNK, 3X/DAY
  4. LYRICA [Suspect]
     Active Substance: PREGABALIN
     Indication: SEIZURE

REACTIONS (7)
  - Nausea [Unknown]
  - Back disorder [Unknown]
  - Intentional product use issue [Unknown]
  - Tremor [Unknown]
  - Expired product administered [Unknown]
  - Musculoskeletal discomfort [Unknown]
  - Diarrhoea [Unknown]
